FAERS Safety Report 6537000-1 (Version None)
Quarter: 2010Q1

REPORT INFORMATION
  Report Type: 
  Country: None (occurrence: None)
  Receive Date: 20100107
  Receipt Date: 20091225
  Transmission Date: 20100710
  Serious: Yes (Hospitalization)
  Sender: FDA-Public Use
  Company Number: 091231-0001276

PATIENT
  Age: 21 Day
  Sex: Female

DRUGS (1)
  1. INDOCIN [Suspect]
     Indication: PATENT DUCTUS ARTERIOSUS
     Dosage: IV
     Route: 042

REACTIONS (8)
  - BLOOD PRESSURE DECREASED [None]
  - CARDIAC FAILURE [None]
  - GASTROINTESTINAL PERFORATION [None]
  - ILEUS [None]
  - INTUSSUSCEPTION [None]
  - NO THERAPEUTIC RESPONSE [None]
  - PULMONARY HAEMORRHAGE [None]
  - TACHYCARDIA [None]
